FAERS Safety Report 9249037 (Version 1)
Quarter: 2013Q1

REPORT INFORMATION
  Report Type: Spontaneous
  Country: US (occurrence: None)
  Receive Date: 20130305
  Receipt Date: 20130305
  Transmission Date: 20140127
  Serious: Yes (Other)
  Sender: FDA-Public Use
  Company Number: 163-21880-12061832

PATIENT
  Age: 87 Year
  Sex: Male
  Weight: 58.06 kg

DRUGS (17)
  1. REVLIMID [Suspect]
     Indication: PLASMA CELL MYELOMA
     Dosage: 10 MG, 21 IN 21 D, PO
     Route: 048
     Dates: start: 20120409
  2. LASIX (FUROSEMIDE) [Concomitant]
  3. KLOR-CON (POTASSIUM CHLORIDE) [Concomitant]
  4. OXYCONTIN (OXYCODONE HYDROCHLORIDE) [Concomitant]
  5. XANAX (ALPRAZOLAM) [Concomitant]
  6. TRAZODONE (TRAZODONE) [Concomitant]
  7. VITAMIN D (ERGOCALCIFEROL) [Concomitant]
  8. ASA (ACETYLSALICYLIC ACID) [Concomitant]
  9. CALTRATE(CALCIUM CARBONATE) [Concomitant]
  10. METOPROLOL(METOPROLOL) [Concomitant]
  11. LANTUS(INSULIN GLARGINE) [Concomitant]
  12. NOVOLOG(INSULIN ASPART) [Concomitant]
  13. SENNA(SENNA) [Concomitant]
  14. POLYETHYLENE(MACROGOL) [Concomitant]
  15. ZOMETA(ZOLEDRONIC ACID) [Concomitant]
  16. DECADRON(DEXAMETHASONE) [Concomitant]
  17. MYCELEX TROCHE(CLOTRIMAZOLE) [Concomitant]

REACTIONS (2)
  - Neutropenia [None]
  - Candida infection [None]
